FAERS Safety Report 8313587-3 (Version None)
Quarter: 2012Q1

REPORT INFORMATION
  Report Type: 
  Country: None (occurrence: None)
  Receive Date: 20120315
  Receipt Date: 20110329
  Transmission Date: 20120608
  Serious: No
  Sender: FDA-Public Use
  Company Number: PHHY2011US22680

PATIENT
  Age: 60 Year
  Sex: Female

DRUGS (4)
  1. VICODIN ES [Concomitant]
  2. XANAX [Concomitant]
  3. MELOXICAM [Concomitant]
  4. GILENYA [Suspect]
     Indication: RELAPSING-REMITTING MULTIPLE SCLEROSIS
     Dosage: 0.5 MG, QD, ORAL
     Route: 048
     Dates: start: 20101124

REACTIONS (3)
  - PIGMENTATION DISORDER [None]
  - BACK PAIN [None]
  - ABDOMINAL PAIN [None]
